FAERS Safety Report 12621718 (Version 1)
Quarter: 2016Q3

REPORT INFORMATION
  Report Type: Spontaneous
  Country: US (occurrence: None)
  Receive Date: 20160803
  Receipt Date: 20160803
  Transmission Date: 20161109
  Serious: Yes (Hospitalization, Other)
  Sender: FDA-Public Use
  Company Number: None

PATIENT
  Age: 61 Year
  Sex: Male

DRUGS (1)
  1. ENTYVIO [Suspect]
     Active Substance: VEDOLIZUMAB
     Indication: CROHN^S DISEASE
     Dosage: 300MG WEEK 0,2,3 INTRAVENOUS (NOT OTHERWISE ESPECIFIED)
     Route: 042

REACTIONS (6)
  - Activities of daily living impaired [None]
  - Eye pain [None]
  - Gait disturbance [None]
  - Movement disorder [None]
  - Skin reaction [None]
  - Malaise [None]

NARRATIVE: CASE EVENT DATE: 20160629
